FAERS Safety Report 12713099 (Version 1)
Quarter: 2016Q3

REPORT INFORMATION
  Report Type: Spontaneous
  Country: JP (occurrence: JP)
  Receive Date: 20160902
  Receipt Date: 20160902
  Transmission Date: 20161109
  Serious: Yes (Hospitalization)
  Sender: FDA-Public Use
  Company Number: JP-009507513-1608JPN000946

PATIENT
  Age: 42 Year
  Sex: Male

DRUGS (5)
  1. REFLEX [Concomitant]
     Active Substance: MIRTAZAPINE
     Indication: DEPRESSION
     Dosage: 15 MG, QD
     Route: 048
     Dates: start: 20160630
  2. BELSOMRA [Suspect]
     Active Substance: SUVOREXANT
     Indication: INSOMNIA
     Dosage: 15 MG, QD
     Route: 048
     Dates: end: 20160704
  3. BELSOMRA [Suspect]
     Active Substance: SUVOREXANT
     Indication: INSOMNIA
     Dosage: 20 MG, QD
     Route: 048
     Dates: start: 20160705
  4. ALINAMIN F (FURSULTIAMINE HYDROCHLORIDE) [Concomitant]
     Indication: MALAISE
     Dosage: 1 DF, TID
     Route: 048
     Dates: start: 20160630
  5. LORAZEPAM. [Concomitant]
     Active Substance: LORAZEPAM
     Indication: DEPRESSION
     Dosage: 1 MG, TID
     Route: 048
     Dates: start: 20160630

REACTIONS (2)
  - Hepatic function abnormal [Recovered/Resolved]
  - Underdose [Unknown]
